FAERS Safety Report 20954961 (Version 1)
Quarter: 2022Q2

REPORT INFORMATION
  Report Type: Report from Study
  Country: US (occurrence: US)
  Receive Date: 20220614
  Receipt Date: 20220614
  Transmission Date: 20220720
  Serious: Yes (Hospitalization, Other)
  Sender: FDA-Public Use
  Company Number: US-EXELIXIS-XL18422052681

PATIENT
  Age: 70 Year
  Sex: Female
  Weight: 99.3 kg

DRUGS (1)
  1. CABOZANTINIB [Suspect]
     Active Substance: CABOZANTINIB
     Indication: Renal cell carcinoma
     Dosage: UNK
     Dates: start: 20220311

REACTIONS (7)
  - Lymphocyte count decreased [Recovering/Resolving]
  - Skin infection [Recovering/Resolving]
  - Gastric ulcer [Recovering/Resolving]
  - Gastric perforation [Recovering/Resolving]
  - Muscular weakness [Recovering/Resolving]
  - Hypoalbuminaemia [Recovering/Resolving]
  - Constipation [Recovered/Resolved]

NARRATIVE: CASE EVENT DATE: 20220518
